FAERS Safety Report 9353204 (Version 2)
Quarter: 2013Q3

REPORT INFORMATION
  Report Type: Spontaneous
  Country: US (occurrence: US)
  Receive Date: 20130618
  Receipt Date: 20130710
  Transmission Date: 20140515
  Serious: No
  Sender: FDA-Public Use
  Company Number: US-PFIZER INC-2013179010

PATIENT
  Age: 31 Year
  Sex: Male

DRUGS (1)
  1. ADVIL [Suspect]
     Indication: BACK PAIN
     Dosage: UNK

REACTIONS (3)
  - Extra dose administered [Unknown]
  - Abdominal discomfort [Unknown]
  - Chest discomfort [Unknown]
